FAERS Safety Report 18272727 (Version 1)
Quarter: 2020Q3

REPORT INFORMATION
  Report Type: Spontaneous
  Country: US (occurrence: US)
  Receive Date: 20200916
  Receipt Date: 20200916
  Transmission Date: 20201103
  Serious: Yes (Other)
  Sender: FDA-Public Use
  Company Number: None

PATIENT
  Age: 54 Year
  Sex: Male
  Weight: 86.4 kg

DRUGS (6)
  1. DIPHENHYDRAMINE 50 MG PO [Concomitant]
     Dates: start: 20200819, end: 20200819
  2. GAMMAGARD [Suspect]
     Active Substance: HUMAN IMMUNOGLOBULIN G
     Indication: HYPOGAMMAGLOBULINAEMIA
     Dosage: ?          OTHER FREQUENCY:Q3W;?
     Route: 042
     Dates: start: 20200819, end: 20200819
  3. SOLU?MEDROL(METHYLPREDNISOLONE) 125 MG IN 100 ML NSS [Concomitant]
     Dates: start: 20200819, end: 20200819
  4. ACETAMINOPHEN 650 MG PO [Concomitant]
     Dates: start: 20200819, end: 20200819
  5. SODIUM CHLORIDE 0.9% 1000 ML [Concomitant]
     Dates: start: 20200819, end: 20200819
  6. KETOROLAC 15 MG IV PUSH [Concomitant]
     Dates: start: 20200819, end: 20200819

REACTIONS (2)
  - Migraine [None]
  - Product quality issue [None]

NARRATIVE: CASE EVENT DATE: 20200819
